FAERS Safety Report 22957216 (Version 2)
Quarter: 2024Q4

REPORT INFORMATION
  Report Type: Report from Study
  Country: US (occurrence: US)
  Receive Date: 20230919
  Receipt Date: 20241009
  Transmission Date: 20250115
  Serious: Yes (Other)
  Sender: TAKEDA
  Company Number: US-TAKEDA-2023TUS090499

PATIENT
  Sex: Female

DRUGS (1)
  1. PRUCALOPRIDE [Suspect]
     Active Substance: PRUCALOPRIDE
     Indication: Product used for unknown indication
     Dosage: UNK
     Route: 065

REACTIONS (3)
  - Eye operation [Unknown]
  - Product use issue [Unknown]
  - No adverse event [Unknown]
